FAERS Safety Report 14315996 (Version 1)
Quarter: 2017Q4

REPORT INFORMATION
  Report Type: Report from Study
  Country: DE (occurrence: DE)
  Receive Date: 20171221
  Receipt Date: 20171221
  Transmission Date: 20180321
  Serious: Yes (Hospitalization)
  Sender: FDA-Public Use
  Company Number: DE-MYLANLABS-2017M1080247

PATIENT
  Sex: Male
  Weight: 21 kg

DRUGS (7)
  1. NAPROXEN. [Suspect]
     Active Substance: NAPROXEN
     Indication: STILL^S DISEASE
     Route: 048
  2. INDOMETACIN [Concomitant]
     Active Substance: INDOMETHACIN
     Indication: STILL^S DISEASE
     Route: 048
     Dates: start: 20120703
  3. METHOTREXATE MYLAN [Suspect]
     Active Substance: METHOTREXATE SODIUM
     Indication: STILL^S DISEASE
     Route: 058
     Dates: start: 20150512, end: 20151106
  4. PREDNISON [Concomitant]
     Active Substance: PREDNISONE
     Dosage: 10 MG, QD
     Route: 048
     Dates: start: 20160125
  5. IBUPROFEN. [Suspect]
     Active Substance: IBUPROFEN
     Indication: STILL^S DISEASE
     Route: 048
  6. ROACTEMRA [Suspect]
     Active Substance: TOCILIZUMAB
     Indication: STILL^S DISEASE
     Route: 042
     Dates: start: 20151030, end: 20160114
  7. PREDNISON [Concomitant]
     Active Substance: PREDNISONE
     Indication: STILL^S DISEASE
     Route: 048
     Dates: start: 20151030

REACTIONS (4)
  - Intracranial pressure increased [Recovered/Resolved]
  - Headache [Recovered/Resolved]
  - Pleural effusion [Recovering/Resolving]
  - Pneumonia [Not Recovered/Not Resolved]

NARRATIVE: CASE EVENT DATE: 20160124
